FAERS Safety Report 6829329-4 (Version None)
Quarter: 2010Q3

REPORT INFORMATION
  Report Type: 
  Country: None (occurrence: None)
  Receive Date: 20100709
  Receipt Date: 20070522
  Transmission Date: 20110219
  Serious: No
  Sender: FDA-Public Use
  Company Number: US-PFIZER INC-2007016819

PATIENT
  Sex: Female
  Weight: 71.67 kg

DRUGS (13)
  1. CHANTIX [Suspect]
     Indication: SMOKING CESSATION THERAPY
     Dates: start: 20070221
  2. GLUCOPHAGE [Concomitant]
     Indication: DIABETES MELLITUS
  3. GLIPIZIDE [Concomitant]
     Indication: DIABETES MELLITUS
  4. LEXAPRO [Concomitant]
  5. KLONOPIN [Concomitant]
  6. COZAAR [Concomitant]
  7. ZOCOR [Concomitant]
  8. PEPCID [Concomitant]
  9. MECLIZINE [Concomitant]
     Indication: NAUSEA
  10. MECLIZINE [Concomitant]
     Indication: DIZZINESS
  11. ZYRTEC [Concomitant]
     Indication: MULTIPLE ALLERGIES
  12. VENTOLIN [Concomitant]
  13. GLUCOSAMINE [Concomitant]

REACTIONS (2)
  - COUGH [None]
  - THROAT IRRITATION [None]
